FAERS Safety Report 4644176-X (Version None)
Quarter: 2005Q2

REPORT INFORMATION
  Report Type: 
  Country: None (occurrence: None)
  Receive Date: 20050425
  Receipt Date: 20050407
  Transmission Date: 20051028
  Serious: Yes (Hospitalization)
  Sender: FDA-Public Use
  Company Number: DE-GLAXOSMITHKLINE-D0046315A

PATIENT
  Sex: Female
  Weight: 3 kg

DRUGS (2)
  1. PAROXETINE HCL [Suspect]
     Dosage: 40MG PER DAY
  2. AMPICILLINE [Concomitant]
     Indication: SYSTEMIC ANTIBACTERIAL THERAPY
     Dates: start: 20050403

REACTIONS (13)
  - CONJUNCTIVAL HAEMORRHAGE [None]
  - DERMATITIS DIAPER [None]
  - DIARRHOEA NEONATAL [None]
  - DRUG EXPOSURE DURING PREGNANCY [None]
  - DRUG WITHDRAWAL SYNDROME [None]
  - EXANTHEM [None]
  - HYPOKINESIA [None]
  - OBLIQUE PRESENTATION [None]
  - OLIGODIPSIA [None]
  - POLYCYTHAEMIA [None]
  - SOMNOLENCE NEONATAL [None]
  - VOMITING NEONATAL [None]
  - WEIGHT DECREASED [None]
